FAERS Safety Report 21256479 (Version 1)
Quarter: 2022Q3

REPORT INFORMATION
  Report Type: Spontaneous
  Country: US (occurrence: US)
  Receive Date: 20220826
  Receipt Date: 20220826
  Transmission Date: 20221026
  Serious: No
  Sender: FDA-Public Use
  Company Number: US-GLENMARK PHARMACEUTICALS-2022GMK072339

PATIENT

DRUGS (1)
  1. NORETHINDRONE ACETATE [Suspect]
     Active Substance: NORETHINDRONE ACETATE
     Indication: Menstrual cycle management
     Dosage: 5 MILLIGRAM, TID
     Route: 048

REACTIONS (1)
  - Product use in unapproved indication [Unknown]
